FAERS Safety Report 8842309 (Version 1)
Quarter: 2012Q4

REPORT INFORMATION
  Report Type: Spontaneous
  Country: US (occurrence: None)
  Receive Date: 20121015
  Receipt Date: 20121015
  Transmission Date: 20130627
  Serious: No
  Sender: FDA-Public Use
  Company Number: None

PATIENT
  Age: 44 Year
  Sex: Male
  Weight: 62.6 kg

DRUGS (1)
  1. DOXAZOSIN [Suspect]
     Indication: BPH
     Dosage: 1mg hs po
30 days tx
     Route: 048
     Dates: start: 20120321, end: 20120825

REACTIONS (3)
  - Dyskinesia [None]
  - Anxiety [None]
  - Insomnia [None]
